FAERS Safety Report 24579930 (Version 1)
Quarter: 2024Q4

REPORT INFORMATION
  Report Type: Spontaneous
  Country: US (occurrence: None)
  Receive Date: 20241104
  Receipt Date: 20241104
  Transmission Date: 20250115
  Serious: No
  Sender: Public
  Company Number: None

PATIENT
  Age: 63 Year
  Sex: Female
  Weight: 56 kg

DRUGS (1)
  1. LISINOPRIL [Suspect]
     Active Substance: LISINOPRIL
     Dosage: OTHER ROUTE : OTHER;?
     Route: 050
     Dates: start: 20240121, end: 20240626

REACTIONS (1)
  - Cough [None]

NARRATIVE: CASE EVENT DATE: 20240626
